FAERS Safety Report 14895092 (Version 2)
Quarter: 2018Q3

REPORT INFORMATION
  Report Type: Spontaneous
  Country: IT (occurrence: IT)
  Receive Date: 20180515
  Receipt Date: 20180704
  Transmission Date: 20181010
  Serious: Yes (Hospitalization)
  Sender: FDA-Public Use
  Company Number: IT-TEVA-2018-IT-892101

PATIENT
  Age: 83 Year
  Sex: Female

DRUGS (3)
  1. HUMALOG [Suspect]
     Active Substance: INSULIN LISPRO
     Dosage: 18 IU (INTERNATIONAL UNIT) DAILY;
     Route: 058
  2. METFORMIN [Suspect]
     Active Substance: METFORMIN HYDROCHLORIDE
     Route: 048
  3. LANTUS [Suspect]
     Active Substance: INSULIN GLARGINE
     Dosage: 15 IU (INTERNATIONAL UNIT) DAILY;
     Route: 058

REACTIONS (3)
  - Hyperhidrosis [Unknown]
  - Hypoglycaemia [Unknown]
  - Sopor [Unknown]

NARRATIVE: CASE EVENT DATE: 20170214
